FAERS Safety Report 25229308 (Version 1)
Quarter: 2025Q2

REPORT INFORMATION
  Report Type: Spontaneous
  Country: JP (occurrence: JP)
  Receive Date: 20250423
  Receipt Date: 20250423
  Transmission Date: 20250716
  Serious: Yes (Hospitalization)
  Sender: MYLAN
  Company Number: JP-MYLANLABS-2025M1033482

PATIENT
  Age: 55 Year
  Sex: Female

DRUGS (20)
  1. TACROLIMUS [Suspect]
     Active Substance: TACROLIMUS
     Indication: Rheumatoid arthritis
     Dosage: 2 MILLIGRAM, QD
  2. TACROLIMUS [Suspect]
     Active Substance: TACROLIMUS
     Indication: Idiopathic inflammatory myopathy
     Dosage: 2 MILLIGRAM, QD
  3. TACROLIMUS [Suspect]
     Active Substance: TACROLIMUS
     Dosage: 2 MILLIGRAM, QD
     Route: 048
  4. TACROLIMUS [Suspect]
     Active Substance: TACROLIMUS
     Dosage: 2 MILLIGRAM, QD
     Route: 048
  5. TACROLIMUS [Suspect]
     Active Substance: TACROLIMUS
     Dosage: 3 MILLIGRAM, QD
  6. TACROLIMUS [Suspect]
     Active Substance: TACROLIMUS
     Dosage: 3 MILLIGRAM, QD
  7. TACROLIMUS [Suspect]
     Active Substance: TACROLIMUS
     Dosage: 3 MILLIGRAM, QD
     Route: 048
  8. TACROLIMUS [Suspect]
     Active Substance: TACROLIMUS
     Dosage: 3 MILLIGRAM, QD
     Route: 048
  9. PREDNISOLONE [Suspect]
     Active Substance: PREDNISOLONE
     Indication: Rheumatoid arthritis
     Dosage: (1.0 MG/KG BODY WEIGHT)
  10. PREDNISOLONE [Suspect]
     Active Substance: PREDNISOLONE
     Indication: Idiopathic inflammatory myopathy
     Dosage: (1.0 MG/KG BODY WEIGHT)
  11. PREDNISOLONE [Suspect]
     Active Substance: PREDNISOLONE
     Dosage: (1.0 MG/KG BODY WEIGHT)
     Route: 048
  12. PREDNISOLONE [Suspect]
     Active Substance: PREDNISOLONE
     Dosage: (1.0 MG/KG BODY WEIGHT)
     Route: 048
  13. PREDNISOLONE [Suspect]
     Active Substance: PREDNISOLONE
  14. PREDNISOLONE [Suspect]
     Active Substance: PREDNISOLONE
  15. PREDNISOLONE [Suspect]
     Active Substance: PREDNISOLONE
     Route: 048
  16. PREDNISOLONE [Suspect]
     Active Substance: PREDNISOLONE
     Route: 048
  17. METHYLPREDNISOLONE [Concomitant]
     Active Substance: METHYLPREDNISOLONE
     Indication: Rheumatoid arthritis
     Dosage: FOR THE FIRST 3 DAYS AFTER ADMISSION
  18. METHYLPREDNISOLONE [Concomitant]
     Active Substance: METHYLPREDNISOLONE
     Indication: Idiopathic inflammatory myopathy
     Dosage: FOR THE FIRST 3 DAYS AFTER ADMISSION
     Route: 042
  19. METHYLPREDNISOLONE [Concomitant]
     Active Substance: METHYLPREDNISOLONE
     Dosage: FOR THE FIRST 3 DAYS AFTER ADMISSION
     Route: 042
  20. METHYLPREDNISOLONE [Concomitant]
     Active Substance: METHYLPREDNISOLONE
     Dosage: FOR THE FIRST 3 DAYS AFTER ADMISSION

REACTIONS (2)
  - Drug ineffective [Unknown]
  - Off label use [Unknown]
